FAERS Safety Report 24136546 (Version 3)
Quarter: 2024Q3

REPORT INFORMATION
  Report Type: Spontaneous
  Country: MX (occurrence: MX)
  Receive Date: 20240725
  Receipt Date: 20240912
  Transmission Date: 20241017
  Serious: No
  Sender: AMGEN
  Company Number: MX-AMGEN-MEXSP2024144270

PATIENT
  Age: 44 Year
  Sex: Female

DRUGS (2)
  1. PEGFILGRASTIM [Suspect]
     Active Substance: PEGFILGRASTIM
     Indication: Breast cancer
     Dosage: 6 MILLIGRAM PER MILLILITRE
     Route: 065
  2. PEGFILGRASTIM [Suspect]
     Active Substance: PEGFILGRASTIM
     Dosage: 6 MILLIGRAM PER MILLILITRE
     Route: 065

REACTIONS (4)
  - Accidental exposure to product [Unknown]
  - Device placement issue [Unknown]
  - Device leakage [Unknown]
  - Device malfunction [Unknown]

NARRATIVE: CASE EVENT DATE: 20240708
